FAERS Safety Report 9369604 (Version 2)
Quarter: 2013Q3

REPORT INFORMATION
  Report Type: Spontaneous
  Country: US (occurrence: US)
  Receive Date: 20130626
  Receipt Date: 20130819
  Transmission Date: 20140515
  Serious: Yes (Death)
  Sender: FDA-Public Use
  Company Number: US-GENZYME-RENA-1001824

PATIENT
  Sex: Female
  Weight: 84 kg

DRUGS (7)
  1. RENVELA [Suspect]
     Indication: HYPERPHOSPHATAEMIA
     Dosage: 7.2 G, QD (3 TABLETS WITH MEALS)
     Route: 065
  2. INSULIN LANTUS [Concomitant]
     Indication: PRODUCT USED FOR UNKNOWN INDICATION
     Dosage: UNK, UNK
     Route: 065
  3. FLUOXETINE [Concomitant]
     Indication: PRODUCT USED FOR UNKNOWN INDICATION
     Dosage: 70 MG, UNK
     Route: 065
  4. DIOVAN [Concomitant]
     Indication: PRODUCT USED FOR UNKNOWN INDICATION
     Dosage: UNK
     Route: 065
  5. NOVOLOG [Concomitant]
     Indication: PRODUCT USED FOR UNKNOWN INDICATION
     Dosage: UNK
     Route: 065
  6. MIDODRINE [Concomitant]
     Indication: PRODUCT USED FOR UNKNOWN INDICATION
     Dosage: 10 MG, UNK
     Route: 065
  7. CYMBALTA [Concomitant]
     Indication: PRODUCT USED FOR UNKNOWN INDICATION
     Dosage: 40 MG, UNK
     Route: 065

REACTIONS (2)
  - Cardiac failure [Fatal]
  - Blood potassium increased [Fatal]
